FAERS Safety Report 14690355 (Version 1)
Quarter: 2018Q1

REPORT INFORMATION
  Report Type: Spontaneous
  Country: US (occurrence: US)
  Receive Date: 20180328
  Receipt Date: 20180328
  Transmission Date: 20180509
  Serious: No
  Sender: FDA-Public Use
  Company Number: None

PATIENT
  Sex: Female
  Weight: 57.61 kg

DRUGS (1)
  1. CIMZIA [Suspect]
     Active Substance: CERTOLIZUMAB PEGOL
     Indication: RHEUMATOID ARTHRITIS
     Dosage: 400 MG Q 4 WEEKS SUBQ
     Route: 058
     Dates: start: 201710

REACTIONS (5)
  - Visual impairment [None]
  - Eyelids pruritus [None]
  - Fluid retention [None]
  - Pruritus [None]
  - Eye swelling [None]
